FAERS Safety Report 5742182-5 (Version None)
Quarter: 2008Q2

REPORT INFORMATION
  Report Type: 
  Country: None (occurrence: None)
  Receive Date: 20080514
  Receipt Date: 20080514
  Transmission Date: 20081010
  Serious: Yes (Other)
  Sender: FDA-Public Use
  Company Number: None

PATIENT
  Age: 77 Year
  Sex: Male

DRUGS (1)
  1. DIGITEK 0.125MG AMIDE-BERTEK- [Suspect]
     Dosage: 0.125MG DAILY PO
     Route: 048
     Dates: start: 20080416, end: 20080509

REACTIONS (3)
  - CHEST DISCOMFORT [None]
  - FATIGUE [None]
  - HEART RATE INCREASED [None]
